FAERS Safety Report 6821387-6 (Version None)
Quarter: 2010Q2

REPORT INFORMATION
  Report Type: 
  Country: None (occurrence: None)
  Receive Date: 20100630
  Receipt Date: 20100617
  Transmission Date: 20101027
  Serious: Yes (Hospitalization, Other)
  Sender: FDA-Public Use
  Company Number: 014079

PATIENT
  Sex: Male

DRUGS (2)
  1. LACOSAMIDE [Suspect]
     Indication: EPILEPSY
     Dosage: 250 MG BID ORAL
     Route: 048
     Dates: start: 20091207
  2. KEPPRA [Suspect]

REACTIONS (1)
  - SUICIDAL IDEATION [None]
